FAERS Safety Report 23622764 (Version 1)
Quarter: 2024Q1

REPORT INFORMATION
  Report Type: Report from Study
  Country: US (occurrence: US)
  Receive Date: 20240312
  Receipt Date: 20240312
  Transmission Date: 20240410
  Serious: No
  Sender: FDA-Public Use
  Company Number: US-AGIOS-2402US03675

PATIENT
  Sex: Male

DRUGS (2)
  1. MITAPIVAT [Suspect]
     Active Substance: MITAPIVAT
     Indication: Pyruvate kinase deficiency anaemia
     Dosage: 50 MILLIGRAM, BID
     Route: 048
     Dates: start: 20220922
  2. MITAPIVAT [Suspect]
     Active Substance: MITAPIVAT
     Indication: Acquired asplenia

REACTIONS (3)
  - Headache [Unknown]
  - Haemoglobin decreased [Unknown]
  - Off label use [Unknown]
